FAERS Safety Report 5153619-7 (Version None)
Quarter: 2006Q4

REPORT INFORMATION
  Report Type: 
  Country: None (occurrence: None)
  Receive Date: 20061113
  Receipt Date: 20061031
  Transmission Date: 20070319
  Serious: Yes (Other)
  Sender: FDA-Public Use
  Company Number: 2006134863

PATIENT
  Age: 62 Year
  Sex: Male

DRUGS (5)
  1. ATARAX [Suspect]
     Dosage: ORAL
     Route: 048
     Dates: start: 20061026
  2. PENTAZOCINE LACTATE [Concomitant]
  3. ROPIVACAINE (ROPIVACAINE) [Concomitant]
  4. VOLTAREN [Concomitant]
  5. OMEPRAZOLE [Concomitant]

REACTIONS (2)
  - HYPOGLYCAEMIA [None]
  - TREMOR [None]
